FAERS Safety Report 10533908 (Version 1)
Quarter: 2014Q4

REPORT INFORMATION
  Report Type: Spontaneous
  Country: US (occurrence: None)
  Receive Date: 20141021
  Receipt Date: 20141021
  Transmission Date: 20150529
  Serious: Yes (Life-Threatening, Hospitalization, Disabling, Other)
  Sender: FDA-Public Use
  Company Number: None

PATIENT
  Age: 30 Year
  Sex: Female
  Weight: 48.54 kg

DRUGS (1)
  1. LIALDA [Suspect]
     Active Substance: MESALAMINE
     Indication: COLITIS ULCERATIVE

REACTIONS (8)
  - Musculoskeletal pain [None]
  - Nerve injury [None]
  - Rash [None]
  - Chest discomfort [None]
  - Pain in extremity [None]
  - Hypersensitivity [None]
  - Chest pain [None]
  - Myalgia [None]

NARRATIVE: CASE EVENT DATE: 20141001
